FAERS Safety Report 5796368-4 (Version None)
Quarter: 2008Q2

REPORT INFORMATION
  Report Type: 
  Country: None (occurrence: None)
  Receive Date: 20080630
  Receipt Date: 20080630
  Transmission Date: 20081010
  Serious: No
  Sender: FDA-Public Use
  Company Number: None

PATIENT
  Age: 42 Year
  Sex: Female
  Weight: 58.9676 kg

DRUGS (1)
  1. BUPROPION 300 MG XL TAB ANCHEN [Suspect]
     Indication: DEPRESSION
     Dosage: 1 ONCE A DAY PO
     Route: 048
     Dates: start: 20080606, end: 20080620

REACTIONS (2)
  - HEADACHE [None]
  - PHARMACEUTICAL PRODUCT COMPLAINT [None]
